FAERS Safety Report 8304766-X (Version None)
Quarter: 2012Q2

REPORT INFORMATION
  Report Type: 
  Country: None (occurrence: None)
  Receive Date: 20120423
  Receipt Date: 20120409
  Transmission Date: 20120825
  Serious: Yes (Death, Other)
  Sender: FDA-Public Use
  Company Number: IT-ROCHE-1059236

PATIENT

DRUGS (1)
  1. MABTHERA [Suspect]
     Indication: STEM CELL TRANSPLANT

REACTIONS (4)
  - BONE MARROW FAILURE [None]
  - CYTOMEGALOVIRUS INFECTION [None]
  - PNEUMONIA CYTOMEGALOVIRAL [None]
  - BACTERIAL SEPSIS [None]
